FAERS Safety Report 7082244-6 (Version None)
Quarter: 2010Q4

REPORT INFORMATION
  Report Type: 
  Country: None (occurrence: None)
  Receive Date: 20101104
  Receipt Date: 20101021
  Transmission Date: 20110411
  Serious: Yes (Hospitalization, Other)
  Sender: FDA-Public Use
  Company Number: US-PAR PHARMACEUTICAL, INC-2010SCPR002266

PATIENT
  Age: 46 Year
  Sex: Male
  Weight: 99.773 kg

DRUGS (6)
  1. PROPAFENONE HCL [Suspect]
     Indication: ATRIAL FIBRILLATION
     Dosage: 325 MG, BID
     Route: 065
     Dates: start: 20090101
  2. PROPAFENONE HCL [Suspect]
     Dosage: 425 MG, BID
     Route: 065
  3. DILTIAZEM [Concomitant]
     Indication: PRODUCT USED FOR UNKNOWN INDICATION
     Dosage: UNK
     Route: 065
  4. METOPROLOL [Concomitant]
     Indication: PRODUCT USED FOR UNKNOWN INDICATION
     Dosage: UNK
     Route: 065
  5. SIMVASTATIN [Concomitant]
     Indication: PRODUCT USED FOR UNKNOWN INDICATION
     Dosage: UNK
     Route: 065
  6. FUROSEMIDE [Concomitant]
     Indication: DYSPNOEA EXERTIONAL
     Dosage: UNK
     Route: 065

REACTIONS (14)
  - ASPARTATE AMINOTRANSFERASE INCREASED [None]
  - ATRIAL FLUTTER [None]
  - BUNDLE BRANCH BLOCK LEFT [None]
  - DRUG TOXICITY [None]
  - DYSPNOEA [None]
  - DYSPNOEA EXERTIONAL [None]
  - ELECTROCARDIOGRAM QRS COMPLEX PROLONGED [None]
  - FALL [None]
  - LEFT VENTRICULAR DYSFUNCTION [None]
  - LEFT VENTRICULAR HYPERTROPHY [None]
  - QRS AXIS ABNORMAL [None]
  - SKIN LACERATION [None]
  - SUBDURAL HAEMATOMA [None]
  - SYNCOPE [None]
